FAERS Safety Report 10695091 (Version 2)
Quarter: 2015Q1

REPORT INFORMATION
  Report Type: Spontaneous
  Country: US (occurrence: None)
  Receive Date: 20150105
  Receipt Date: 20150121
  Transmission Date: 20150721
  Serious: Yes (Other)
  Sender: FDA-Public Use
  Company Number: 2014-US-017182

PATIENT
  Age: 43 Year
  Sex: Male
  Weight: 77.1 kg

DRUGS (4)
  1. XYREM [Suspect]
     Active Substance: SODIUM OXYBATE
     Indication: MUSCLE FATIGUE
     Route: 048
     Dates: start: 201407, end: 2014
  2. LEVODOPA (LEVODOPA) [Concomitant]
     Active Substance: LEVODOPA
  3. GABAPENTIN (GABAPENTIN) [Concomitant]
     Active Substance: GABAPENTIN
  4. XYREM [Suspect]
     Active Substance: SODIUM OXYBATE
     Indication: NARCOLEPSY
     Route: 048
     Dates: start: 201407, end: 2014

REACTIONS (1)
  - Parkinson^s disease [None]

NARRATIVE: CASE EVENT DATE: 201409
